FAERS Safety Report 26147100 (Version 2)
Quarter: 2025Q4

REPORT INFORMATION
  Report Type: Report from Study
  Country: US (occurrence: US)
  Receive Date: 20251211
  Receipt Date: 20251226
  Transmission Date: 20260117
  Serious: No
  Sender: PFIZER
  Company Number: US-PFIZER INC-PV202400075464

PATIENT
  Age: 82 Year
  Sex: Female
  Weight: 49.9 kg

DRUGS (3)
  1. IBRANCE [Suspect]
     Active Substance: PALBOCICLIB
     Indication: Breast cancer female
     Dosage: 100 MG, CYCLIC (1 A DAY, FOR 3 WEEKS)
     Route: 048
     Dates: start: 2023
  2. IBRANCE [Suspect]
     Active Substance: PALBOCICLIB
     Dosage: 100 MG, CYCLIC, DAILY X 21 DAYS, THEN 7 DAYS OFF
     Route: 048
     Dates: start: 20240210
  3. IBRANCE [Suspect]
     Active Substance: PALBOCICLIB
     Dosage: 100 MG, CYCLIC (1 P.O.Q. DAY X 21 DAYS, THEN 7 DAYS OFF)
     Route: 048

REACTIONS (2)
  - Wound [Unknown]
  - Product dose omission in error [Unknown]
